FAERS Safety Report 18931075 (Version 2)
Quarter: 2021Q1

REPORT INFORMATION
  Report Type: Spontaneous
  Country: US (occurrence: US)
  Receive Date: 20210223
  Receipt Date: 20210324
  Transmission Date: 20210420
  Serious: No
  Sender: FDA-Public Use
  Company Number: US-TEVA-2021-US-1883014

PATIENT
  Age: 63 Year
  Sex: Female

DRUGS (2)
  1. ESTRADIOL TRANSDERMAL SYSTEM [Concomitant]
     Active Substance: ESTRADIOL
     Route: 062
  2. QVAR REDIHALER [Suspect]
     Active Substance: BECLOMETHASONE DIPROPIONATE
     Indication: ASTHMA
     Dosage: DOSE: 80 MICROGRAM, 2 PUFFS PER DAY
     Route: 055
     Dates: start: 2004

REACTIONS (4)
  - Throat irritation [Recovered/Resolved]
  - Device delivery system issue [Unknown]
  - Cough [Unknown]
  - Device malfunction [Unknown]
